FAERS Safety Report 11141361 (Version 1)
Quarter: 2015Q2

REPORT INFORMATION
  Report Type: Spontaneous
  Country: US (occurrence: US)
  Receive Date: 20150527
  Receipt Date: 20150527
  Transmission Date: 20150821
  Serious: Yes (Hospitalization)
  Sender: FDA-Public Use
  Company Number: US-MALLINCKRODT-QSC-2014-0644

PATIENT
  Sex: Male
  Weight: 76.19 kg

DRUGS (1)
  1. H.P. ACTHAR [Suspect]
     Active Substance: CORTICOTROPIN
     Indication: NEPHROTIC SYNDROME
     Dosage: 80 UNITS, BIW
     Route: 058
     Dates: start: 20140807, end: 2014

REACTIONS (5)
  - Weight increased [Recovered/Resolved]
  - Drug ineffective [Unknown]
  - Oedema peripheral [Unknown]
  - Abdominal pain upper [Unknown]
  - Localised oedema [Unknown]

NARRATIVE: CASE EVENT DATE: 2014
